FAERS Safety Report 21664925 (Version 2)
Quarter: 2022Q4

REPORT INFORMATION
  Report Type: Spontaneous
  Country: US (occurrence: US)
  Receive Date: 20221130
  Receipt Date: 20221222
  Transmission Date: 20230112
  Serious: No
  Sender: FDA-Public Use
  Company Number: US-JNJFOC-20221152036

PATIENT
  Sex: Male
  Weight: 108.96 kg

DRUGS (7)
  1. SPRAVATO [Suspect]
     Active Substance: ESKETAMINE
     Indication: Major depression
     Dates: start: 202011
  2. KETAMINE [Concomitant]
     Active Substance: KETAMINE
     Indication: Major depression
     Route: 002
  3. WELLBUTRIN [Concomitant]
     Active Substance: BUPROPION HYDROCHLORIDE
  4. TRINTELLIX [Concomitant]
     Active Substance: VORTIOXETINE HYDROBROMIDE
  5. TESTOSTERONE [Concomitant]
     Active Substance: TESTOSTERONE
  6. CHOLESTYRAMINE [Concomitant]
     Active Substance: CHOLESTYRAMINE
     Indication: Diarrhoea
  7. NORCO [Concomitant]
     Active Substance: ACETAMINOPHEN\HYDROCODONE BITARTRATE
     Indication: Pain

REACTIONS (4)
  - Product dose omission issue [Unknown]
  - Off label use [Unknown]
  - Drug tolerance increased [Unknown]
  - Therapeutic product effect decreased [Unknown]
